FAERS Safety Report 12138110 (Version 2)
Quarter: 2016Q2

REPORT INFORMATION
  Report Type: Spontaneous
  Country: GB (occurrence: GB)
  Receive Date: 20160302
  Receipt Date: 20160415
  Transmission Date: 20160815
  Serious: Yes (Life-Threatening)
  Sender: FDA-Public Use
  Company Number: GB-ACTAVIS-2016-04118

PATIENT
  Age: 39 Year
  Sex: Male

DRUGS (1)
  1. COCODAMOL [Suspect]
     Active Substance: ACETAMINOPHEN\CODEINE PHOSPHATE
     Indication: PAIN
     Dosage: UNK, DAILY (30-50 IN VARYING AMOUNTS THROUGHOUT THE DAY)
     Route: 048
     Dates: start: 200009

REACTIONS (7)
  - Apathy [Not Recovered/Not Resolved]
  - Euphoric mood [Not Recovered/Not Resolved]
  - Depression [Not Recovered/Not Resolved]
  - Dependence [Not Recovered/Not Resolved]
  - Headache [Not Recovered/Not Resolved]
  - Lethargy [Not Recovered/Not Resolved]
  - Fatigue [Not Recovered/Not Resolved]
